FAERS Safety Report 6349295-8 (Version None)
Quarter: 2009Q3

REPORT INFORMATION
  Report Type: 
  Country: None (occurrence: None)
  Receive Date: 20090911
  Receipt Date: 20090901
  Transmission Date: 20100115
  Serious: Yes (Other)
  Sender: FDA-Public Use
  Company Number: A0806825A

PATIENT
  Age: 59 Year
  Sex: Female

DRUGS (1)
  1. AVANDIA [Suspect]
     Dosage: 8MG PER DAY
     Route: 065
     Dates: end: 20070124

REACTIONS (4)
  - HYPOAESTHESIA [None]
  - MYOCARDIAL INFARCTION [None]
  - PARAESTHESIA [None]
  - VISUAL ACUITY REDUCED [None]
